FAERS Safety Report 18568541 (Version 1)
Quarter: 2020Q4

REPORT INFORMATION
  Report Type: Spontaneous
  Country: FR (occurrence: FR)
  Receive Date: 20201202
  Receipt Date: 20201202
  Transmission Date: 20210114
  Serious: Yes (Hospitalization, Other)
  Sender: FDA-Public Use
  Company Number: FR-ACCORD-209775

PATIENT
  Age: 69 Year
  Sex: Female

DRUGS (11)
  1. SIMVASTATIN. [Suspect]
     Active Substance: SIMVASTATIN
     Indication: HYPERCHOLESTEROLAEMIA
     Route: 048
     Dates: end: 20201021
  2. FORLAX [Concomitant]
     Active Substance: POLYETHYLENE GLYCOL 4000
     Route: 048
  3. DIFRAREL [Concomitant]
     Route: 048
  4. PARACETAMOL [Concomitant]
     Active Substance: ACETAMINOPHEN
     Route: 048
  5. NEURONTIN [Concomitant]
     Active Substance: GABAPENTIN
     Dosage: 400 MG
     Route: 048
  6. NOVONORM [Concomitant]
     Active Substance: REPAGLINIDE
     Dosage: 0.5 MG
     Route: 048
  7. COVERSYL [Concomitant]
     Active Substance: PERINDOPRIL
     Dosage: 5 MG
     Route: 048
  8. XARELTO [Concomitant]
     Active Substance: RIVAROXABAN
     Dosage: 20 MG
     Route: 048
  9. AMIODARONE [Concomitant]
     Active Substance: AMIODARONE
     Route: 048
  10. NOVOMIX [Concomitant]
     Active Substance: INSULIN ASPART
     Route: 058
  11. VERAPAMIL [Concomitant]
     Active Substance: VERAPAMIL HYDROCHLORIDE
     Route: 048

REACTIONS (2)
  - Rhabdomyolysis [Unknown]
  - Hepatocellular injury [Recovering/Resolving]

NARRATIVE: CASE EVENT DATE: 20201015
